FAERS Safety Report 6120745-5 (Version None)
Quarter: 2009Q1

REPORT INFORMATION
  Report Type: 
  Country: None (occurrence: None)
  Receive Date: 20090317
  Receipt Date: 20090311
  Transmission Date: 20090719
  Serious: Yes (Death, Hospitalization)
  Sender: FDA-Public Use
  Company Number: DE-ELI_LILLY_AND_COMPANY-DE200903002933

PATIENT
  Sex: Male

DRUGS (1)
  1. BYETTA [Suspect]
     Route: 058

REACTIONS (2)
  - ABDOMINAL PAIN [None]
  - DEATH [None]
